FAERS Safety Report 7239556-2 (Version None)
Quarter: 2011Q1

REPORT INFORMATION
  Report Type: 
  Country: None (occurrence: None)
  Receive Date: 20110121
  Receipt Date: 20110111
  Transmission Date: 20110831
  Serious: Yes (Hospitalization)
  Sender: FDA-Public Use
  Company Number: JP-GILEAD-E2B_00001044

PATIENT
  Age: 42 Year
  Sex: Female

DRUGS (4)
  1. PREDNISOLONE [Concomitant]
     Indication: SCLERODERMA
  2. AMBRISENTAN [Suspect]
     Indication: PULMONARY HYPERTENSION
     Route: 048
     Dates: start: 20101019, end: 20101224
  3. FLOLAN [Concomitant]
     Indication: PULMONARY HYPERTENSION
  4. REVATIO [Concomitant]
     Indication: PULMONARY HYPERTENSION

REACTIONS (2)
  - HAEMOPTYSIS [None]
  - CHEST X-RAY ABNORMAL [None]
